FAERS Safety Report 4803021-X (Version None)
Quarter: 2005Q4

REPORT INFORMATION
  Report Type: 
  Country: None (occurrence: None)
  Receive Date: 20051017
  Receipt Date: 20051017
  Transmission Date: 20060501
  Serious: Yes (Hospitalization)
  Sender: FDA-Public Use
  Company Number: None

PATIENT
  Age: 57 Year
  Sex: Male

DRUGS (12)
  1. PREDNISONE [Suspect]
     Indication: CONTRAST MEDIA REACTION
  2. PREDNISONE [Suspect]
     Indication: PROPHYLAXIS
  3. CLOPIDOGREL BISULFATE [Concomitant]
  4. LANOXIN [Concomitant]
  5. DIPHENHYDRAMINE HCL [Concomitant]
  6. ENALAPRIL MALEATE [Concomitant]
  7. FELODIPINE [Concomitant]
  8. FUOSEMIDE [Concomitant]
  9. ISOSORBIDE DINITRATE [Concomitant]
  10. LORAZEPAM [Concomitant]
  11. METOPROLOL [Concomitant]
  12. NITROGLYCERIN [Concomitant]

REACTIONS (1)
  - BLOOD GLUCOSE INCREASED [None]
